FAERS Safety Report 10926375 (Version 4)
Quarter: 2015Q2

REPORT INFORMATION
  Report Type: Spontaneous
  Country: US (occurrence: US)
  Receive Date: 20150318
  Receipt Date: 20150605
  Transmission Date: 20150821
  Serious: Yes (Other)
  Sender: FDA-Public Use
  Company Number: US-PFIZER INC-2015092900

PATIENT
  Age: 49 Year
  Sex: Female
  Weight: 58 kg

DRUGS (2)
  1. LYRICA [Suspect]
     Active Substance: PREGABALIN
     Indication: RHEUMATOID ARTHRITIS
     Dosage: 75 MG, 3X/DAY
  2. ULTRAM [Concomitant]
     Active Substance: TRAMADOL HYDROCHLORIDE
     Dosage: 50 MG, EVERY 4 TO 6 HOURS AS NEEDED

REACTIONS (4)
  - Pain [Unknown]
  - Malaise [Unknown]
  - Abasia [Unknown]
  - Breast cancer [Unknown]
